FAERS Safety Report 13759232 (Version 1)
Quarter: 2017Q3

REPORT INFORMATION
  Report Type: Spontaneous
  Country: BR (occurrence: BR)
  Receive Date: 20170717
  Receipt Date: 20170717
  Transmission Date: 20171127
  Serious: Yes (Other)
  Sender: FDA-Public Use
  Company Number: BR-PFIZER INC-2017260538

PATIENT
  Sex: Female

DRUGS (1)
  1. DEPO-PROVERA [Suspect]
     Active Substance: MEDROXYPROGESTERONE ACETATE
     Indication: CONTRACEPTION
     Dosage: 150 MG, EVERY 3 MONTHS (1 APPLICATION)

REACTIONS (3)
  - Injection site discolouration [Recovered/Resolved]
  - Injection site erythema [Recovered/Resolved]
  - Injection site abscess [Recovered/Resolved]

NARRATIVE: CASE EVENT DATE: 2015
